FAERS Safety Report 21101220 (Version 1)
Quarter: 2022Q3

REPORT INFORMATION
  Report Type: Spontaneous
  Country: US (occurrence: None)
  Receive Date: 20220719
  Receipt Date: 20220719
  Transmission Date: 20221026
  Serious: Yes (Other)
  Sender: FDA-Public Use
  Company Number: None

PATIENT
  Age: 66 Year
  Sex: Male
  Weight: 69.3 kg

DRUGS (2)
  1. FUROSEMIDE [Suspect]
     Active Substance: FUROSEMIDE
     Dosage: FREQUENCY : DAILY;?
     Route: 048
     Dates: start: 20220314, end: 20220321
  2. VALPROIC ACID [Suspect]
     Active Substance: VALPROIC ACID
     Dosage: FREQUENCY : AT BEDTIME;?
     Route: 048
     Dates: start: 20220304, end: 20220406

REACTIONS (3)
  - Inappropriate antidiuretic hormone secretion [None]
  - Blood sodium decreased [None]
  - Blood osmolarity increased [None]

NARRATIVE: CASE EVENT DATE: 20220316
